FAERS Safety Report 8430320 (Version 4)
Quarter: 2012Q4

REPORT INFORMATION
  Report Type: 
  Country: CA (occurrence: CA)
  Receive Date: 20120228
  Receipt Date: 20121004
  Transmission Date: 20130627
  Serious: Yes (Hospitalization, Other)
  Sender: FDA-Public Use
  Company Number: PHHY2012CA015324

PATIENT
  Sex: Female

DRUGS (3)
  1. ACLASTA [Suspect]
     Indication: OSTEOPOROSIS
     Dosage: UNK UKN, UNK
     Route: 042
     Dates: start: 20090119
  2. ACLASTA [Suspect]
     Dosage: UNK UKN, UNK
     Route: 042
     Dates: start: 20100413
  3. ACLASTA [Suspect]
     Dosage: UNK UKN, UNK
     Route: 042
     Dates: start: 20110412

REACTIONS (9)
  - Fall [Unknown]
  - Pelvic fracture [Unknown]
  - Femur fracture [Unknown]
  - Clostridium difficile infection [Unknown]
  - Haematopoietic neoplasm [Unknown]
  - Inguinal hernia [Unknown]
  - Blood sodium decreased [Unknown]
  - Gait disturbance [Unknown]
  - Asthenia [Unknown]
